FAERS Safety Report 9749532 (Version 1)
Quarter: 2013Q4

REPORT INFORMATION
  Report Type: Spontaneous
  Country: US (occurrence: None)
  Receive Date: 20131211
  Receipt Date: 20131211
  Transmission Date: 20140711
  Serious: Yes (Hospitalization)
  Sender: FDA-Public Use
  Company Number: None

PATIENT
  Age: 24 Year
  Sex: Female
  Weight: 61.2 kg

DRUGS (3)
  1. ZONEGRAN [Suspect]
  2. ZONGERAN [Concomitant]
  3. SPRINTEC (NORGESTIMATE ESTRADIOL) [Concomitant]

REACTIONS (4)
  - Leukopenia [None]
  - Weight decreased [None]
  - Night sweats [None]
  - Diarrhoea [None]
